FAERS Safety Report 24579605 (Version 1)
Quarter: 2024Q4

REPORT INFORMATION
  Report Type: Spontaneous
  Country: US (occurrence: US)
  Receive Date: 20241105
  Receipt Date: 20241105
  Transmission Date: 20250114
  Serious: No
  Sender: IMMUNOCORE
  Company Number: US-IMMUNOCORE, LTD-2024-IMC-003221

PATIENT
  Sex: Female

DRUGS (1)
  1. KIMMTRAK [Suspect]
     Active Substance: TEBENTAFUSP-TEBN
     Indication: Product used for unknown indication
     Dosage: UNK

REACTIONS (6)
  - Hyperhidrosis [Unknown]
  - Hot flush [Unknown]
  - Chills [Unknown]
  - Pyrexia [Unknown]
  - Abdominal pain [Unknown]
  - Constipation [Unknown]
